APPROVED DRUG PRODUCT: CARMUSTINE
Active Ingredient: CARMUSTINE
Strength: 100MG/VIAL
Dosage Form/Route: INJECTABLE;INJECTION
Application: A209278 | Product #001 | TE Code: AP
Applicant: PENN LIFE SCIENCES LLC
Approved: Apr 2, 2019 | RLD: No | RS: No | Type: RX